FAERS Safety Report 7231831-0 (Version None)
Quarter: 2011Q1

REPORT INFORMATION
  Report Type: 
  Country: None (occurrence: None)
  Receive Date: 20110118
  Receipt Date: 20110113
  Transmission Date: 20110831
  Serious: Yes (Hospitalization)
  Sender: FDA-Public Use
  Company Number: US-PERRIGO-11US000308

PATIENT

DRUGS (1)
  1. ACETAMINOPHEN SLOW RELEASE [Suspect]
     Indication: OVERDOSE
     Dosage: UNK
     Route: 048

REACTIONS (3)
  - RENAL FAILURE ACUTE [None]
  - HEPATIC FAILURE [None]
  - OVERDOSE [None]
